FAERS Safety Report 7036981-X (Version None)
Quarter: 2010Q4

REPORT INFORMATION
  Report Type: 
  Country: None (occurrence: None)
  Receive Date: 20101011
  Receipt Date: 20101006
  Transmission Date: 20110411
  Serious: Yes (Other)
  Sender: FDA-Public Use
  Company Number: NL-BRISTOL-MYERS SQUIBB COMPANY-15324650

PATIENT
  Age: 43 Year
  Sex: Male

DRUGS (4)
  1. ATAZANAVIR [Suspect]
  2. NEVIRAPINE [Suspect]
  3. ZIDOVUDINE [Suspect]
  4. LAMIVUDINE [Suspect]

REACTIONS (1)
  - ACUTE HIV INFECTION [None]
